FAERS Safety Report 9311355 (Version 2)
Quarter: 2013Q2

REPORT INFORMATION
  Report Type: Spontaneous
  Country: US (occurrence: US)
  Receive Date: 20130528
  Receipt Date: 20130621
  Transmission Date: 20140414
  Serious: Yes (Hospitalization)
  Sender: FDA-Public Use
  Company Number: US-BRISTOL-MYERS SQUIBB COMPANY-18941963

PATIENT
  Age: 61 Year
  Sex: Female

DRUGS (10)
  1. KOMBIGLYZE XR [Suspect]
     Indication: TYPE 2 DIABETES MELLITUS
     Route: 048
     Dates: start: 20120531, end: 20130512
  2. TIZANIDINE [Concomitant]
  3. FLUOXETINE [Concomitant]
  4. LISINOPRIL [Concomitant]
  5. ASPIRIN [Concomitant]
  6. ADVAIR [Concomitant]
  7. RELPAX [Concomitant]
  8. PRAVASTATINE [Concomitant]
  9. PRANDIN [Concomitant]
  10. HUMULIN N [Concomitant]

REACTIONS (1)
  - Pancreatitis acute [Recovered/Resolved]
